FAERS Safety Report 9640548 (Version 2)
Quarter: 2013Q4

REPORT INFORMATION
  Report Type: Report from Study
  Country: US (occurrence: US)
  Receive Date: 20131023
  Receipt Date: 20131023
  Transmission Date: 20140711
  Serious: No
  Sender: FDA-Public Use
  Company Number: US-ABBVIE-13P-163-1085230-00

PATIENT
  Age: 43 Year
  Sex: Female

DRUGS (10)
  1. LUPRON DEPOT 3.75MG [Suspect]
     Indication: ENDOMETRIOSIS
     Dates: start: 20130403, end: 20130503
  2. LUPRON DEPOT 11.25MG [Suspect]
     Dates: start: 20130503
  3. AYGESTIN [Suspect]
     Indication: PRODUCT USED FOR UNKNOWN INDICATION
     Dosage: DOUBLE UP DOSE DUE TO MISSING DOSE
     Route: 048
     Dates: start: 201304
  4. VALIUM [Concomitant]
     Indication: ANXIETY
  5. ZOLOFT [Concomitant]
     Indication: ANXIETY
  6. DICLOFENAC [Concomitant]
     Indication: ARTHRITIS
  7. DICLOFENAC [Concomitant]
     Indication: PAIN
     Dosage: INCREASED TO 200-225MG
     Route: 048
  8. MULTIVITAMIN [Concomitant]
     Indication: PRODUCT USED FOR UNKNOWN INDICATION
     Dosage: DAILY
  9. B12 [Concomitant]
     Indication: PRODUCT USED FOR UNKNOWN INDICATION
     Dosage: TOOK OCCASIONALLY
  10. PRENATAL VITAMINS [Concomitant]
     Indication: PRODUCT USED FOR UNKNOWN INDICATION
     Dosage: TOOK OCCASIONALLY

REACTIONS (13)
  - Abdominal discomfort [Not Recovered/Not Resolved]
  - Vomiting [Recovered/Resolved]
  - Vulvovaginal pruritus [Unknown]
  - Endometriosis [Unknown]
  - Anger [Unknown]
  - Adnexa uteri pain [Not Recovered/Not Resolved]
  - Mood swings [Not Recovered/Not Resolved]
  - Pain [Not Recovered/Not Resolved]
  - Vaginismus [Not Recovered/Not Resolved]
  - Uterine spasm [Not Recovered/Not Resolved]
  - Pelvic pain [Not Recovered/Not Resolved]
  - Back pain [Not Recovered/Not Resolved]
  - Abdominal pain [Not Recovered/Not Resolved]
